FAERS Safety Report 8783660 (Version 4)
Quarter: 2012Q4

REPORT INFORMATION
  Report Type: 
  Country: JP (occurrence: JP)
  Receive Date: 20120913
  Receipt Date: 20121025
  Transmission Date: 20130627
  Serious: Yes (Death, Hospitalization)
  Sender: FDA-Public Use
  Company Number: JP-CUBIST-2012S1000762

PATIENT
  Age: 72 Year
  Sex: Female
  Weight: 43 kg

DRUGS (16)
  1. CUBICIN [Suspect]
     Indication: STAPHYLOCOCCAL SEPSIS
     Route: 042
     Dates: start: 20120815, end: 20120818
  2. CUBICIN [Suspect]
     Indication: STAPHYLOCOCCAL SEPSIS
     Route: 042
     Dates: start: 20120815, end: 20120818
  3. CUBICIN [Suspect]
     Indication: STAPHYLOCOCCAL SEPSIS
     Route: 042
     Dates: start: 20120818, end: 20120901
  4. CUBICIN [Suspect]
     Indication: STAPHYLOCOCCAL SEPSIS
     Route: 042
     Dates: start: 20120818, end: 20120901
  5. LEUNASE [Suspect]
     Indication: ACUTE LYMPHOCYTIC LEUKAEMIA
     Dosage: Dose unit:3600
     Route: 042
     Dates: start: 20120807, end: 20120818
  6. MEROPENEM [Concomitant]
     Indication: INFECTION
     Route: 042
     Dates: start: 20120807, end: 20120814
  7. ISEPACIN [Concomitant]
     Indication: INFECTION
     Route: 042
     Dates: start: 20120809, end: 20120814
  8. ONCOVIN [Concomitant]
     Indication: ACUTE LYMPHOCYTIC LEUKAEMIA
     Route: 042
     Dates: start: 20120808, end: 20120813
  9. FIRSTCIN [Concomitant]
     Indication: INFECTION
     Route: 042
     Dates: start: 20120815, end: 20120905
  10. NEUTROGIN [Concomitant]
     Indication: WHITE BLOOD CELL COUNT DECREASED
     Route: 042
     Dates: start: 20120815, end: 20120824
  11. IMMUNOGLOBULIN [Concomitant]
     Indication: INFECTION
     Route: 042
     Dates: start: 20120816, end: 20120817
  12. RAMIAN [Concomitant]
     Indication: PROPHYLAXIS
     Route: 048
     Dates: end: 20120819
  13. MIXED AMINO ACID/CARBOHYDRATE ELECTROLYTE/VITAMIN COMBINE [Concomitant]
     Indication: NUTRITIONAL SUPPORT
     Route: 042
     Dates: start: 20120815, end: 20120819
  14. NICERGOLINE [Concomitant]
     Indication: PRODUCT USED FOR UNKNOWN INDICATION
     Route: 048
     Dates: end: 20120819
  15. BETAHISTINE MESILATE [Concomitant]
     Indication: PRODUCT USED FOR UNKNOWN INDICATION
     Route: 048
     Dates: end: 20120819
  16. CEPHADOL [Concomitant]
     Indication: PRODUCT USED FOR UNKNOWN INDICATION
     Route: 048
     Dates: end: 20120819

REACTIONS (4)
  - Diabetic hyperosmolar coma [Fatal]
  - Hypernatraemia [Fatal]
  - Blood creatine phosphokinase increased [Not Recovered/Not Resolved]
  - Ammonia increased [Recovered/Resolved]
